FAERS Safety Report 21218578 (Version 1)
Quarter: 2022Q3

REPORT INFORMATION
  Report Type: Spontaneous
  Country: US (occurrence: US)
  Receive Date: 20220816
  Receipt Date: 20220816
  Transmission Date: 20221026
  Serious: No
  Sender: FDA-Public Use
  Company Number: US-TAKEDA-2022TUS055497

PATIENT
  Sex: Female
  Weight: 59 kg

DRUGS (1)
  1. PREVACID [Suspect]
     Active Substance: LANSOPRAZOLE
     Indication: Gastrooesophageal reflux disease
     Dosage: 30 MILLIGRAM, BID
     Route: 065

REACTIONS (3)
  - Extra dose administered [Unknown]
  - Prescription drug used without a prescription [Unknown]
  - Drug ineffective [Unknown]
